FAERS Safety Report 11148416 (Version 3)
Quarter: 2016Q2

REPORT INFORMATION
  Report Type: Spontaneous
  Country: US (occurrence: US)
  Receive Date: 20150529
  Receipt Date: 20160610
  Transmission Date: 20160815
  Serious: Yes (Other)
  Sender: FDA-Public Use
  Company Number: US-ASTRAZENECA-2013SE89126

PATIENT
  Age: 20175 Day
  Sex: Female
  Weight: 109.7 kg

DRUGS (32)
  1. BYETTA [Suspect]
     Active Substance: EXENATIDE
     Indication: TYPE 2 DIABETES MELLITUS
     Dosage: 5.0MG UNKNOWN
     Route: 065
     Dates: start: 20090717
  2. HUMALOG [Concomitant]
     Active Substance: INSULIN LISPRO
  3. ASPIRIN. [Concomitant]
     Active Substance: ASPIRIN
     Dates: start: 20110103
  4. TYLENOL [Concomitant]
     Active Substance: ACETAMINOPHEN
     Route: 048
     Dates: start: 20100401
  5. BENZONATATE. [Concomitant]
     Active Substance: BENZONATATE
     Dosage: 100.0MG UNKNOWN
     Dates: start: 20031215
  6. VASOTEC/ENALAPRIL MALEATE [Concomitant]
     Dosage: 5.0MG UNKNOWN
     Dates: start: 20031219
  7. MEBENDAZOLE. [Concomitant]
     Active Substance: MEBENDAZOLE
     Dosage: 100.0MG UNKNOWN
     Dates: start: 20060308
  8. NORVASC [Concomitant]
     Active Substance: AMLODIPINE BESYLATE
     Dosage: 5.0MG UNKNOWN
     Dates: start: 20060308
  9. TRICOR [Concomitant]
     Active Substance: FENOFIBRATE
  10. BYETTA [Suspect]
     Active Substance: EXENATIDE
     Indication: TYPE 2 DIABETES MELLITUS
     Route: 065
     Dates: start: 200609, end: 200806
  11. ELAVIL/AMITRIPTYLINE HCL [Concomitant]
     Dosage: 50.0MG UNKNOWN
     Dates: start: 20081111
  12. CEPHALEXIN. [Concomitant]
     Active Substance: CEPHALEXIN
     Dosage: 500.0MG UNKNOWN
     Dates: start: 20041207
  13. BIAXIN [Concomitant]
     Active Substance: CLARITHROMYCIN
     Dosage: 500.0MG UNKNOWN
     Dates: start: 20060331
  14. NEXIUM [Concomitant]
     Active Substance: ESOMEPRAZOLE MAGNESIUM
     Route: 048
     Dates: start: 20070703
  15. BYETTA [Suspect]
     Active Substance: EXENATIDE
     Indication: TYPE 2 DIABETES MELLITUS
     Dosage: 10 MCG (250MCG/ML 2.4ML)TWICE DAILY WITHIN 1 HOUR OF MORNING MEAL AND THE EVENING MEAL
     Route: 065
     Dates: start: 20060901
  16. SYNTHROID [Concomitant]
     Active Substance: LEVOTHYROXINE SODIUM
     Route: 048
     Dates: start: 20110402
  17. LIPITOR [Concomitant]
     Active Substance: ATORVASTATIN CALCIUM
     Dosage: 40.0MG UNKNOWN
     Dates: start: 20030423
  18. GLYBURIDE. [Concomitant]
     Active Substance: GLYBURIDE
     Dosage: 5.0MG UNKNOWN
     Dates: start: 20030521
  19. DIOVAN [Concomitant]
     Active Substance: VALSARTAN
     Dosage: 80.0MG UNKNOWN
     Dates: start: 20070313
  20. BYETTA [Suspect]
     Active Substance: EXENATIDE
     Indication: TYPE 2 DIABETES MELLITUS
     Dosage: 10 MCG/0.04 ML, TWO TIMES A DAY
     Route: 065
     Dates: start: 20060613
  21. NEURONTIN [Concomitant]
     Active Substance: GABAPENTIN
     Route: 048
     Dates: start: 20110102
  22. CRESTOR [Concomitant]
     Active Substance: ROSUVASTATIN CALCIUM
     Route: 048
     Dates: start: 20140304
  23. ERGOCALCIFEROL. [Concomitant]
     Active Substance: ERGOCALCIFEROL
     Route: 048
     Dates: start: 20110102
  24. CRESTOR [Concomitant]
     Active Substance: ROSUVASTATIN CALCIUM
     Route: 048
     Dates: start: 20081111
  25. IBUPROFEN. [Concomitant]
     Active Substance: IBUPROFEN
     Dates: start: 20030423
  26. METFORMIN HCL [Concomitant]
     Active Substance: METFORMIN HYDROCHLORIDE
     Dosage: 1000.0MG UNKNOWN
     Route: 048
     Dates: start: 20030521
  27. ACTOS [Concomitant]
     Active Substance: PIOGLITAZONE HYDROCHLORIDE
     Dosage: 15.0MG UNKNOWN
     Dates: start: 20060403
  28. WALGREENS [Concomitant]
     Active Substance: ZINC GLUCONATE
  29. TRIAMCINOLON [Concomitant]
     Dates: start: 20140714
  30. PLETAL [Concomitant]
     Active Substance: CILOSTAZOL
     Dates: start: 20040903
  31. PRILOSEC [Concomitant]
     Active Substance: OMEPRAZOLE MAGNESIUM
     Dates: start: 20110103
  32. MIRALAX [Concomitant]
     Active Substance: POLYETHYLENE GLYCOL 3350
     Dates: start: 20100401

REACTIONS (5)
  - Metastases to lymph nodes [Unknown]
  - Thyroid cancer metastatic [Unknown]
  - Post procedural hypothyroidism [Unknown]
  - Pulmonary mass [Unknown]
  - Papillary thyroid cancer [Unknown]

NARRATIVE: CASE EVENT DATE: 20101209
